FAERS Safety Report 23028371 (Version 2)
Quarter: 2023Q4

REPORT INFORMATION
  Report Type: Spontaneous
  Country: ES (occurrence: ES)
  Receive Date: 20231004
  Receipt Date: 20231113
  Transmission Date: 20240110
  Serious: Yes (Hospitalization)
  Sender: FDA-Public Use
  Company Number: ES-GILEAD-2022-0591627

PATIENT
  Age: 61 Year
  Sex: Male
  Weight: 111 kg

DRUGS (170)
  1. CYTARABINE [Suspect]
     Active Substance: CYTARABINE
     Indication: Mantle cell lymphoma
     Dosage: 1
     Route: 065
     Dates: end: 20220730
  2. FLUDARABINE [Suspect]
     Active Substance: FLUDARABINE PHOSPHATE
     Indication: Mantle cell lymphoma
     Dosage: 65 UNK
     Route: 065
     Dates: end: 20220825
  3. FLUDARABINE [Suspect]
     Active Substance: FLUDARABINE PHOSPHATE
     Dosage: 65 UNK
     Route: 065
     Dates: start: 20220827, end: 20220827
  4. FLUDARABINE [Suspect]
     Active Substance: FLUDARABINE PHOSPHATE
     Dosage: 65 UNK
     Route: 065
     Dates: end: 20220826
  5. FLUDARABINE [Suspect]
     Active Substance: FLUDARABINE PHOSPHATE
     Dosage: 65 UNK
     Route: 065
     Dates: end: 20220825
  6. MESNA [Suspect]
     Active Substance: MESNA
     Indication: Mantle cell lymphoma
     Dosage: 538.52
     Route: 065
     Dates: end: 20220825
  7. MESNA [Suspect]
     Active Substance: MESNA
     Dosage: 538.52
     Route: 065
     Dates: end: 20220828
  8. MESNA [Suspect]
     Active Substance: MESNA
     Dosage: 538.52
     Route: 065
     Dates: end: 20220826
  9. MESNA [Suspect]
     Active Substance: MESNA
     Dosage: 538.52
     Route: 065
     Dates: end: 20220827
  10. CYCLOPHOSPHAMIDE [Suspect]
     Active Substance: CYCLOPHOSPHAMIDE
     Indication: Mantle cell lymphoma
     Dosage: 1077
     Route: 065
     Dates: end: 20220826
  11. CYCLOPHOSPHAMIDE [Suspect]
     Active Substance: CYCLOPHOSPHAMIDE
     Dosage: 1077
     Route: 065
     Dates: end: 20220827
  12. CYCLOPHOSPHAMIDE [Suspect]
     Active Substance: CYCLOPHOSPHAMIDE
     Dosage: 1077
     Route: 065
     Dates: end: 20220825
  13. BREXUCABTAGENE AUTOLEUCEL [Suspect]
     Active Substance: BREXUCABTAGENE AUTOLEUCEL
     Indication: Mantle cell lymphoma
     Route: 042
  14. ACYCLOVIR [Concomitant]
     Active Substance: ACYCLOVIR
     Dosage: 800,MG,TWICE DAILY
     Dates: start: 20220905, end: 20221024
  15. ACYCLOVIR [Concomitant]
     Active Substance: ACYCLOVIR
     Indication: Product used for unknown indication
     Dosage: 200,MG,TWICE DAILY
     Dates: start: 20220825, end: 20220904
  16. ASPIRIN [Concomitant]
     Active Substance: ASPIRIN
     Dosage: 100,MG,DAILY
     Dates: start: 2013
  17. ASPIRIN [Concomitant]
     Active Substance: ASPIRIN
     Indication: Product used for unknown indication
     Dosage: 100,MG,DAILY
     Dates: start: 2013, end: 20220728
  18. ASPIRIN [Concomitant]
     Active Substance: ASPIRIN
     Dosage: 100,MG,DAILY
     Dates: start: 20220824, end: 20220830
  19. ASPIRIN [Concomitant]
     Active Substance: ASPIRIN
     Dosage: 100,MG,ONCE
     Dates: start: 20220801, end: 20220801
  20. ASPIRIN [Concomitant]
     Active Substance: ASPIRIN
     Dosage: 100,MG,ONCE
     Dates: start: 20220806, end: 20220806
  21. MAGNESIUM SULFATE [Concomitant]
     Active Substance: MAGNESIUM SULFATE\MAGNESIUM SULFATE HEPTAHYDRATE
     Dosage: 2,OTHER,ONCE
     Dates: start: 20220826, end: 20220826
  22. MAGNESIUM SULFATE [Concomitant]
     Active Substance: MAGNESIUM SULFATE\MAGNESIUM SULFATE HEPTAHYDRATE
     Indication: Product used for unknown indication
     Dosage: 2,OTHER,DAILY
     Dates: start: 20220827, end: 20220828
  23. MAGNESIUM SULFATE [Concomitant]
     Active Substance: MAGNESIUM SULFATE\MAGNESIUM SULFATE HEPTAHYDRATE
     Dosage: 2,OTHER,ONCE
     Dates: start: 20220915, end: 20220915
  24. MAGNESIUM SULFATE [Concomitant]
     Active Substance: MAGNESIUM SULFATE\MAGNESIUM SULFATE HEPTAHYDRATE
     Dosage: 2,OTHER,DAILY
     Dates: start: 20220829, end: 20220830
  25. MAGNESIUM SULFATE [Concomitant]
     Active Substance: MAGNESIUM SULFATE\MAGNESIUM SULFATE HEPTAHYDRATE
     Dosage: 2,OTHER,DAILY
     Dates: start: 20220916, end: 20220920
  26. SULFAMETHOXAZOLE\TRIMETHOPRIM [Concomitant]
     Active Substance: SULFAMETHOXAZOLE\TRIMETHOPRIM
     Dosage: 160/800,MG,DAILY
     Dates: start: 20220825, end: 20220830
  27. SULFAMETHOXAZOLE\TRIMETHOPRIM [Concomitant]
     Active Substance: SULFAMETHOXAZOLE\TRIMETHOPRIM
     Indication: Product used for unknown indication
  28. ONDANSETRON [Concomitant]
     Active Substance: ONDANSETRON
     Dosage: 8,MG,ONCE
     Dates: start: 20220730, end: 20220730
  29. ONDANSETRON [Concomitant]
     Active Substance: ONDANSETRON
     Indication: Product used for unknown indication
     Dosage: 8,MG,THREE TIMES DAILY
     Dates: start: 20220825, end: 20220828
  30. METOCLOPRAMIDE [Concomitant]
     Active Substance: METOCLOPRAMIDE
     Dosage: 10,MG,ONCE
     Dates: start: 20220915, end: 20220915
  31. METOCLOPRAMIDE [Concomitant]
     Active Substance: METOCLOPRAMIDE
     Indication: Product used for unknown indication
     Dosage: 10,MG,THREE TIMES DAILY
     Dates: start: 20220729, end: 20220730
  32. METOCLOPRAMIDE [Concomitant]
     Active Substance: METOCLOPRAMIDE
     Dosage: 10,MG,DAILY
     Dates: start: 20220918, end: 20220919
  33. CALCIUM GLUCONATE [Concomitant]
     Active Substance: CALCIUM GLUCONATE
     Dosage: 1,OTHER,DAILY
     Dates: start: 20220826, end: 20220827
  34. CALCIUM GLUCONATE [Concomitant]
     Active Substance: CALCIUM GLUCONATE
     Indication: Product used for unknown indication
  35. ALOCLAIR PLUS [Concomitant]
     Dosage: 10,ML,THREE TIMES DAILY
     Route: 050
     Dates: start: 20220825, end: 20220923
  36. ALOCLAIR PLUS [Concomitant]
     Indication: Product used for unknown indication
  37. DEXAMETHASONE [Concomitant]
     Active Substance: DEXAMETHASONE
     Dosage: 10,MG,THREE TIMES DAILY
     Dates: start: 20220920, end: 20220920
  38. DEXAMETHASONE [Concomitant]
     Active Substance: DEXAMETHASONE
     Indication: Product used for unknown indication
     Dosage: 10,MG,ONCE
     Dates: start: 20220922, end: 20220922
  39. DEXAMETHASONE [Concomitant]
     Active Substance: DEXAMETHASONE
     Dosage: 10,MG,FOUR TIMES DAILY
     Dates: start: 20220918, end: 20220919
  40. DEXAMETHASONE [Concomitant]
     Active Substance: DEXAMETHASONE
     Dosage: 10,MG,TWICE DAILY
     Dates: start: 20220921, end: 20220921
  41. DEXAMETHASONE [Concomitant]
     Active Substance: DEXAMETHASONE
     Dosage: 4,MG,DAILY
     Dates: start: 20220701, end: 20220707
  42. DEXAMETHASONE [Concomitant]
     Active Substance: DEXAMETHASONE
     Dosage: 1,OTHER,THREE TIMES DAILY
     Route: 050
     Dates: start: 20220729, end: 20220730
  43. OMEPRAZOLE [Concomitant]
     Active Substance: OMEPRAZOLE
     Dosage: 20,MG,DAILY
  44. OMEPRAZOLE [Concomitant]
     Active Substance: OMEPRAZOLE
     Indication: Product used for unknown indication
     Dosage: 20,MG,DAILY
     Route: 048
  45. EVUSHELD [Concomitant]
     Active Substance: CILGAVIMAB\TIXAGEVIMAB
     Dosage: 2,OTHER,ONCE
     Dates: start: 202207, end: 202207
  46. EVUSHELD [Concomitant]
     Active Substance: CILGAVIMAB\TIXAGEVIMAB
     Indication: Product used for unknown indication
  47. MAGNESIUM HYDROXIDE [Concomitant]
     Active Substance: MAGNESIUM HYDROXIDE
     Dosage: 2.4,G,TWICE DAILY
     Dates: start: 20220827, end: 20220828
  48. MAGNESIUM HYDROXIDE [Concomitant]
     Active Substance: MAGNESIUM HYDROXIDE
     Indication: Product used for unknown indication
  49. MINERAL OIL [Concomitant]
     Active Substance: MINERAL OIL
     Indication: Product used for unknown indication
     Dosage: 15,ML,DAILY
     Route: 048
     Dates: start: 20220901, end: 20220915
  50. NITROGLYCERIN [Concomitant]
     Active Substance: NITROGLYCERIN
     Dosage: 0.4,MG,DAILY
     Dates: start: 2013
  51. NITROGLYCERIN [Concomitant]
     Active Substance: NITROGLYCERIN
     Indication: Product used for unknown indication
  52. FUROSEMIDE [Concomitant]
     Active Substance: FUROSEMIDE
     Dosage: 20,MG,ONCE
     Dates: start: 20220914, end: 20220914
  53. FUROSEMIDE [Concomitant]
     Active Substance: FUROSEMIDE
     Indication: Product used for unknown indication
     Dosage: 20,MG,THREE TIMES DAILY
     Dates: start: 20220914, end: 20221008
  54. FUROSEMIDE [Concomitant]
     Active Substance: FUROSEMIDE
     Dosage: 40,MG,TWICE DAILY
     Dates: start: 20220829, end: 20220830
  55. FUROSEMIDE [Concomitant]
     Active Substance: FUROSEMIDE
     Dosage: 20,MG,ONCE
     Dates: start: 20220830, end: 20220830
  56. FUROSEMIDE [Concomitant]
     Active Substance: FUROSEMIDE
     Dosage: 40,MG,TWICE DAILY
     Dates: start: 20220801, end: 20220812
  57. FUROSEMIDE [Concomitant]
     Active Substance: FUROSEMIDE
     Dosage: 40,MG,ONCE
     Dates: start: 20220813, end: 20220828
  58. FUROSEMIDE [Concomitant]
     Active Substance: FUROSEMIDE
     Dosage: 20,MG,ONCE
     Dates: start: 20220905, end: 20220905
  59. FUROSEMIDE [Concomitant]
     Active Substance: FUROSEMIDE
     Dosage: 20,MG,ONCE
     Dates: start: 20220728, end: 20220728
  60. FUROSEMIDE [Concomitant]
     Active Substance: FUROSEMIDE
     Dosage: 20,MG,DAILY
     Dates: start: 20220801, end: 20220802
  61. FUROSEMIDE [Concomitant]
     Active Substance: FUROSEMIDE
     Dosage: 250,MG,DAILY
     Dates: start: 20220729, end: 20220731
  62. FUROSEMIDE [Concomitant]
     Active Substance: FUROSEMIDE
     Dosage: 20,MG,DAILY
     Dates: start: 20220825, end: 20220913
  63. FUROSEMIDE [Concomitant]
     Active Substance: FUROSEMIDE
     Dosage: 20,MG,ONCE
     Dates: start: 20220920, end: 20220920
  64. FUROSEMIDE [Concomitant]
     Active Substance: FUROSEMIDE
     Dosage: 40,MG,DAILY
     Dates: start: 202207, end: 20220728
  65. HUMAN RED BLOOD CELL [Concomitant]
     Active Substance: HUMAN RED BLOOD CELL
     Dosage: 1,OTHER,ONCE
     Dates: start: 20220914, end: 20220914
  66. HUMAN RED BLOOD CELL [Concomitant]
     Active Substance: HUMAN RED BLOOD CELL
     Indication: Product used for unknown indication
     Dosage: 2,OTHER,ONCE
     Dates: start: 20220905, end: 20220905
  67. HUMAN RED BLOOD CELL [Concomitant]
     Active Substance: HUMAN RED BLOOD CELL
     Dosage: 1,OTHER,ONCE
     Dates: start: 20220911, end: 20220911
  68. HUMAN RED BLOOD CELL [Concomitant]
     Active Substance: HUMAN RED BLOOD CELL
     Dosage: 1,OTHER,ONCE
     Dates: start: 20220916, end: 20220916
  69. HUMAN RED BLOOD CELL [Concomitant]
     Active Substance: HUMAN RED BLOOD CELL
     Dosage: 1,OTHER,ONCE
     Dates: start: 20220920, end: 20220920
  70. HUMAN RED BLOOD CELL [Concomitant]
     Active Substance: HUMAN RED BLOOD CELL
     Dosage: 1,OTHER,ONCE
     Dates: start: 20220921, end: 20220921
  71. HUMAN RED BLOOD CELL [Concomitant]
     Active Substance: HUMAN RED BLOOD CELL
     Dosage: 1,OTHER,ONCE
     Dates: start: 20220922, end: 20220922
  72. HUMAN RED BLOOD CELL [Concomitant]
     Active Substance: HUMAN RED BLOOD CELL
     Dosage: 2,OTHER,ONCE
     Dates: start: 20220830, end: 20220830
  73. HUMAN RED BLOOD CELL [Concomitant]
     Active Substance: HUMAN RED BLOOD CELL
     Dosage: 1,OTHER,ONCE
     Dates: start: 20220831, end: 20220831
  74. HUMAN RED BLOOD CELL [Concomitant]
     Active Substance: HUMAN RED BLOOD CELL
     Dosage: 1,OTHER,ONCE
     Dates: start: 20220912, end: 20220912
  75. PLATELETS [Concomitant]
     Active Substance: HUMAN PLATELET, ALLOGENIC
     Dosage: 1,OTHER,ONCE
     Dates: start: 20220919, end: 20220919
  76. PLATELETS [Concomitant]
     Active Substance: HUMAN PLATELET, ALLOGENIC
     Indication: Product used for unknown indication
     Dosage: 1,OTHER,ONCE
     Dates: start: 20220916, end: 20220916
  77. PLATELETS [Concomitant]
     Active Substance: HUMAN PLATELET, ALLOGENIC
     Dosage: 1,OTHER,ONCE
     Dates: start: 20220912, end: 20220912
  78. PLATELETS [Concomitant]
     Active Substance: HUMAN PLATELET, ALLOGENIC
     Dosage: 1,OTHER,ONCE
     Dates: start: 20220922, end: 20220922
  79. PLATELETS [Concomitant]
     Active Substance: HUMAN PLATELET, ALLOGENIC
     Dosage: 1,OTHER,ONCE
     Dates: start: 20220808, end: 20220808
  80. PLATELETS [Concomitant]
     Active Substance: HUMAN PLATELET, ALLOGENIC
     Dosage: 1,OTHER,ONCE
     Dates: start: 20220809, end: 20220809
  81. PLATELETS [Concomitant]
     Active Substance: HUMAN PLATELET, ALLOGENIC
     Dosage: 1,OTHER,ONCE
     Dates: start: 20220914, end: 20220914
  82. PLATELETS [Concomitant]
     Active Substance: HUMAN PLATELET, ALLOGENIC
     Dosage: 1,OTHER,ONCE
     Dates: start: 20220920, end: 20220920
  83. PLATELETS [Concomitant]
     Active Substance: HUMAN PLATELET, ALLOGENIC
     Dosage: 1,OTHER,ONCE
     Dates: start: 20220921, end: 20220921
  84. PLATELETS [Concomitant]
     Active Substance: HUMAN PLATELET, ALLOGENIC
     Dosage: 1,OTHER,ONCE
     Dates: start: 20220913, end: 20220913
  85. PLATELETS [Concomitant]
     Active Substance: HUMAN PLATELET, ALLOGENIC
     Dosage: 1,OTHER,TWICE DAILY
     Dates: start: 20220918, end: 20220918
  86. PLATELETS [Concomitant]
     Active Substance: HUMAN PLATELET, ALLOGENIC
     Dosage: 1,OTHER,ONCE
     Dates: start: 20220915, end: 20220915
  87. PLATELETS [Concomitant]
     Active Substance: HUMAN PLATELET, ALLOGENIC
     Dosage: 1,OTHER,ONCE
     Dates: start: 20220810, end: 20220810
  88. PLATELETS [Concomitant]
     Active Substance: HUMAN PLATELET, ALLOGENIC
     Dosage: 1,OTHER,ONCE
     Dates: start: 20220905, end: 20220905
  89. PLATELETS [Concomitant]
     Active Substance: HUMAN PLATELET, ALLOGENIC
     Dosage: 1,OTHER,ONCE
     Dates: start: 20220812, end: 20220812
  90. PLATELETS [Concomitant]
     Active Substance: HUMAN PLATELET, ALLOGENIC
     Dosage: 1,OTHER,ONCE
     Dates: start: 20220917, end: 20220917
  91. MYCOSTATIN [Concomitant]
     Active Substance: NYSTATIN
     Dosage: 5,ML,THREE TIMES DAILY
     Route: 050
     Dates: start: 20220825, end: 20221024
  92. MYCOSTATIN [Concomitant]
     Active Substance: NYSTATIN
     Indication: Product used for unknown indication
  93. POLYETHYLENE GLYCOLS [Concomitant]
     Active Substance: POLYETHYLENE GLYCOLS
     Dosage: 13.8,G,DAILY
     Dates: start: 20220824, end: 20220828
  94. POLYETHYLENE GLYCOLS [Concomitant]
     Active Substance: POLYETHYLENE GLYCOLS
     Indication: Product used for unknown indication
  95. ALBUMINE HUMAINE 20% BIOTEST [Concomitant]
     Dosage: 10,G,TWICE DAILY
     Dates: start: 20220728, end: 20220731
  96. ALBUMINE HUMAINE 20% BIOTEST [Concomitant]
     Indication: Product used for unknown indication
  97. DEXCHLORPHENIRAMINE [Concomitant]
     Active Substance: DEXCHLORPHENIRAMINE
     Dosage: 5,MG,DAILY
     Dates: start: 20220825, end: 20220827
  98. DEXCHLORPHENIRAMINE [Concomitant]
     Active Substance: DEXCHLORPHENIRAMINE
     Indication: Product used for unknown indication
  99. RASBURICASE [Concomitant]
     Active Substance: RASBURICASE
     Dosage: 19,MG,DAILY
     Dates: start: 20220825, end: 20220828
  100. RASBURICASE [Concomitant]
     Active Substance: RASBURICASE
     Indication: Product used for unknown indication
     Dosage: 20,MG,DAILY
     Dates: start: 20220729, end: 20220730
  101. BEMIPARIN [Concomitant]
     Active Substance: BEMIPARIN
     Dosage: 2500,IU,DAILY
     Dates: start: 20220729, end: 20220806
  102. BEMIPARIN [Concomitant]
     Active Substance: BEMIPARIN
     Indication: Product used for unknown indication
     Dosage: 3500,OTHER,DAILY
     Dates: start: 20220823, end: 20220901
  103. DEXTROSE [Concomitant]
     Active Substance: DEXTROSE\DEXTROSE MONOHYDRATE
     Dosage: 500,ML,TWICE DAILY
     Dates: start: 20220825, end: 20220828
  104. DEXTROSE [Concomitant]
     Active Substance: DEXTROSE\DEXTROSE MONOHYDRATE
     Indication: Product used for unknown indication
  105. LACTULOSE [Concomitant]
     Active Substance: LACTULOSE
     Dosage: 10,MG,DAILY
     Dates: start: 20220909, end: 20220914
  106. LACTULOSE [Concomitant]
     Active Substance: LACTULOSE
     Indication: Product used for unknown indication
     Dosage: 10,G,TWICE DAILY
     Dates: start: 20220915, end: 20220915
  107. LACTULOSE [Concomitant]
     Active Substance: LACTULOSE
     Dosage: 15,MG,OTHER
     Dates: start: 20220813, end: 20220823
  108. LACTULOSE [Concomitant]
     Active Substance: LACTULOSE
     Dosage: 10,G,DAILY
     Dates: start: 202207, end: 20220812
  109. PIPERACILLIN SODIUM\TAZOBACTAM SODIUM [Concomitant]
     Active Substance: PIPERACILLIN SODIUM\TAZOBACTAM SODIUM
     Dosage: 4.5,G,FOUR TIMES DAILY
     Dates: start: 20220810, end: 20220811
  110. PIPERACILLIN SODIUM\TAZOBACTAM SODIUM [Concomitant]
     Active Substance: PIPERACILLIN SODIUM\TAZOBACTAM SODIUM
     Indication: Product used for unknown indication
  111. ACETAMINOPHEN [Concomitant]
     Active Substance: ACETAMINOPHEN
     Dosage: 1,G,ONCE
     Dates: start: 20220915, end: 20220915
  112. ACETAMINOPHEN [Concomitant]
     Active Substance: ACETAMINOPHEN
     Indication: Product used for unknown indication
     Dosage: 1,G,DAILY
     Dates: start: 20220909, end: 20220909
  113. ACETAMINOPHEN [Concomitant]
     Active Substance: ACETAMINOPHEN
     Dosage: 1,G,DAILY
     Dates: start: 20220825, end: 20220827
  114. ACETAMINOPHEN [Concomitant]
     Active Substance: ACETAMINOPHEN
     Dosage: 1,G,ONCE
     Dates: start: 20220810, end: 20220810
  115. ENALAPRIL [Concomitant]
     Active Substance: ENALAPRIL
     Dosage: 5,MG,DAILY
  116. ENALAPRIL [Concomitant]
     Active Substance: ENALAPRIL
     Indication: Product used for unknown indication
     Dosage: 5,MG,DAILY
     Dates: end: 20220728
  117. ENALAPRIL [Concomitant]
     Active Substance: ENALAPRIL
     Dosage: 5,MG,DAILY
  118. ENALAPRIL [Concomitant]
     Active Substance: ENALAPRIL
     Dosage: 5,MG,DAILY
  119. ENALAPRIL [Concomitant]
     Active Substance: ENALAPRIL
     Dosage: 5,MG,DAILY
  120. SODIUM CHLORIDE [Concomitant]
     Active Substance: SODIUM CHLORIDE
     Indication: Product used for unknown indication
     Dosage: 250,ML,ONCE
     Route: 042
     Dates: start: 20220801, end: 20220801
  121. SODIUM CHLORIDE [Concomitant]
     Active Substance: SODIUM CHLORIDE
     Dosage: 250,ML,TWICE DAILY
     Route: 042
     Dates: start: 20220810, end: 20220811
  122. SODIUM CHLORIDE [Concomitant]
     Active Substance: SODIUM CHLORIDE
     Dosage: 1000,ML,DAILY
     Route: 042
     Dates: start: 20220729, end: 20220731
  123. URSODIOL [Concomitant]
     Active Substance: URSODIOL
     Dosage: 300,MG,FOUR TIMES DAILY
     Dates: start: 20220728, end: 20221024
  124. URSODIOL [Concomitant]
     Active Substance: URSODIOL
     Indication: Product used for unknown indication
  125. SPIRONOLACTONE [Concomitant]
     Active Substance: SPIRONOLACTONE
     Dosage: 200,MG,ONCE
     Dates: start: 20220802, end: 20220802
  126. SPIRONOLACTONE [Concomitant]
     Active Substance: SPIRONOLACTONE
     Indication: Product used for unknown indication
     Dosage: 100,MG,DAILY
     Dates: start: 20220827, end: 20220902
  127. SPIRONOLACTONE [Concomitant]
     Active Substance: SPIRONOLACTONE
     Dosage: 200,MG,ONCE
     Dates: start: 20220806, end: 20220806
  128. SPIRONOLACTONE [Concomitant]
     Active Substance: SPIRONOLACTONE
     Dosage: 100,MG,DAILY
     Dates: end: 20220728
  129. SPIRONOLACTONE [Concomitant]
     Active Substance: SPIRONOLACTONE
     Dosage: 200,MG,DAILY
     Dates: start: 20220810, end: 20220811
  130. SPIRONOLACTONE [Concomitant]
     Active Substance: SPIRONOLACTONE
     Dosage: 100,MG,DAILY
     Dates: start: 20220812, end: 20220823
  131. CANRENOATE POTASSIUM [Concomitant]
     Active Substance: CANRENOATE POTASSIUM
     Dosage: 200,MG,ONCE
     Dates: start: 20220801, end: 20220801
  132. CANRENOATE POTASSIUM [Concomitant]
     Active Substance: CANRENOATE POTASSIUM
     Indication: Product used for unknown indication
  133. VITAMIN K [Concomitant]
     Active Substance: PHYTONADIONE
     Dosage: 10,MG,ONCE
     Dates: start: 20220810, end: 20220810
  134. VITAMIN K [Concomitant]
     Active Substance: PHYTONADIONE
     Indication: Product used for unknown indication
  135. POTASSIUM [Concomitant]
     Active Substance: POTASSIUM
     Indication: Product used for unknown indication
     Dosage: 8,OTHER,ONCE
     Route: 042
     Dates: start: 20220811, end: 20220811
  136. POTASSIUM [Concomitant]
     Active Substance: POTASSIUM
     Dosage: 600,MG,DAILY
     Dates: start: 20220811, end: 20220823
  137. ALLOPURINOL [Concomitant]
     Active Substance: ALLOPURINOL
     Dosage: 300,MG,DAILY
     Dates: start: 20220820, end: 20221017
  138. ALLOPURINOL [Concomitant]
     Active Substance: ALLOPURINOL
     Indication: Product used for unknown indication
     Dosage: 300,MG,ONCE
     Dates: start: 20220801, end: 20220801
  139. ALLOPURINOL [Concomitant]
     Active Substance: ALLOPURINOL
     Dosage: 300,MG,ONCE
     Dates: start: 20220808, end: 20220808
  140. ALLOPURINOL [Concomitant]
     Active Substance: ALLOPURINOL
     Dosage: 300,MG,DAILY
     Dates: end: 20220728
  141. ALLOPURINOL [Concomitant]
     Active Substance: ALLOPURINOL
     Dosage: 300,MG,ONCE
     Dates: start: 20220806, end: 20220806
  142. ALLOPURINOL [Concomitant]
     Active Substance: ALLOPURINOL
     Dosage: 300,MG,DAILY
     Dates: start: 20220810, end: 20220823
  143. ALLOPURINOL [Concomitant]
     Active Substance: ALLOPURINOL
     Dosage: 300,MG,DAILY
  144. ALLOPURINOL [Concomitant]
     Active Substance: ALLOPURINOL
     Dosage: 100,MG,ONCE
     Dates: start: 20220824, end: 20220824
  145. ALLOPURINOL [Concomitant]
     Active Substance: ALLOPURINOL
     Dosage: 300,MG,DAILY
  146. ALLOPURINOL [Concomitant]
     Active Substance: ALLOPURINOL
     Dosage: 300,MG,DAILY
     Route: 048
  147. ALLOPURINOL [Concomitant]
     Active Substance: ALLOPURINOL
     Dosage: 300,MG,DAILY
     Route: 048
  148. FOLIC ACID [Concomitant]
     Active Substance: FOLIC ACID
     Dosage: 5,MG,DAILY
     Dates: start: 20220729, end: 20220823
  149. FOLIC ACID [Concomitant]
     Active Substance: FOLIC ACID
     Indication: Product used for unknown indication
  150. CALCIUM [Concomitant]
     Active Substance: CALCIUM
     Dosage: ND,MG,ONCE
     Dates: start: 20220628, end: 20220628
  151. CALCIUM [Concomitant]
     Active Substance: CALCIUM
     Indication: Product used for unknown indication
  152. BISOPROLOL [Concomitant]
     Active Substance: BISOPROLOL\BISOPROLOL FUMARATE
     Dosage: 2.5,MG,DAILY
     Dates: end: 20221023
  153. BISOPROLOL [Concomitant]
     Active Substance: BISOPROLOL\BISOPROLOL FUMARATE
     Indication: Product used for unknown indication
     Dosage: 2.5,MG,DAILY
  154. BISOPROLOL [Concomitant]
     Active Substance: BISOPROLOL\BISOPROLOL FUMARATE
     Dosage: 2.5,MG,DAILY
  155. BISOPROLOL [Concomitant]
     Active Substance: BISOPROLOL\BISOPROLOL FUMARATE
     Dosage: 2.5,MG,DAILY
     Route: 048
  156. BISOPROLOL [Concomitant]
     Active Substance: BISOPROLOL\BISOPROLOL FUMARATE
     Dosage: 2.5,MG,DAILY
     Route: 048
  157. LEVOFLOXACIN [Concomitant]
     Active Substance: LEVOFLOXACIN
     Dosage: 500,MG,DAILY
     Dates: start: 20220811, end: 20220816
  158. LEVOFLOXACIN [Concomitant]
     Active Substance: LEVOFLOXACIN
     Indication: Product used for unknown indication
     Dosage: 500,MG,TWICE DAILY
     Dates: start: 20220909, end: 20220909
  159. LEVOFLOXACIN [Concomitant]
     Active Substance: LEVOFLOXACIN
     Dosage: 500,MG,DAILY
     Dates: start: 20220905, end: 20220906
  160. ALBUMIN HUMAN [Concomitant]
     Active Substance: ALBUMIN HUMAN
     Indication: Product used for unknown indication
     Dosage: 10,G,THREE TIMES DAILY
     Route: 042
     Dates: start: 20220825, end: 20220829
  161. ALBUMIN HUMAN [Concomitant]
     Active Substance: ALBUMIN HUMAN
     Dosage: 10,G,THREE TIMES DAILY
     Route: 042
     Dates: start: 20220913, end: 20220921
  162. ALBUMIN HUMAN [Concomitant]
     Active Substance: ALBUMIN HUMAN
     Dosage: 10,G,TWICE DAILY
     Route: 042
     Dates: start: 20220912, end: 20220912
  163. ALBUMIN HUMAN [Concomitant]
     Active Substance: ALBUMIN HUMAN
     Dosage: 10,G,DAILY
     Route: 042
     Dates: start: 20220830, end: 20220902
  164. PIPERACILLIN AND TAZOBACTAM [Concomitant]
     Active Substance: PIPERACILLIN SODIUM\TAZOBACTAM SODIUM
     Indication: Product used for unknown indication
     Dosage: 4/0.5,G,FOUR TIMES DAILY
     Route: 042
     Dates: start: 20220827, end: 20220828
  165. PARAFINEMULSJON NAF  [PARAFFIN] [Concomitant]
     Indication: Product used for unknown indication
     Dosage: 15,ML,DAILY
     Route: 048
     Dates: start: 20220901, end: 20220915
  166. ATORVASTATIN [Concomitant]
     Active Substance: ATORVASTATIN
     Indication: Product used for unknown indication
     Dosage: 10,MG,DAILY
  167. PHYSIOLOGICAL SALINE SOLUTION(SODIUM CHLORIDE] [Concomitant]
     Indication: Product used for unknown indication
     Dosage: 250,ML,TWICE DAILY
     Route: 042
     Dates: start: 20220810, end: 20220811
  168. PHYSIOLOGICAL SALINE SOLUTION(SODIUM CHLORIDE] [Concomitant]
     Dosage: 250,ML,ONCE
     Route: 042
     Dates: start: 20220801, end: 20220801
  169. PHYSIOLOGICAL SALINE SOLUTION(SODIUM CHLORIDE] [Concomitant]
     Dosage: 1000,ML,DAILY
     Route: 042
     Dates: start: 20220729, end: 20220731
  170. CHLORHEXIDINE[CHLORHEXIDINE] [Concomitant]
     Indication: Product used for unknown indication
     Dosage: 15,ML,THREE TIMES DAILY
     Route: 050
     Dates: start: 20220825, end: 20221024

REACTIONS (2)
  - Hepatic cirrhosis [Recovered/Resolved]
  - Renal impairment [Recovered/Resolved]

NARRATIVE: CASE EVENT DATE: 20220728
